FAERS Safety Report 6429536-9 (Version None)
Quarter: 2009Q4

REPORT INFORMATION
  Report Type: 
  Country: None (occurrence: None)
  Receive Date: 20091102
  Receipt Date: 20091021
  Transmission Date: 20100525
  Serious: Yes (Other)
  Sender: FDA-Public Use
  Company Number: DSA_41867_2009

PATIENT
  Sex: Male

DRUGS (11)
  1. XENAZINE [Suspect]
     Indication: OBSESSIVE-COMPULSIVE DISORDER
     Dosage: 12.5 MG BID ORAL
     Route: 048
     Dates: start: 20091001
  2. XENAZINE [Suspect]
     Indication: TOURETTE'S DISORDER
     Dosage: 12.5 MG BID ORAL
     Route: 048
     Dates: start: 20091001
  3. ZOLOFT [Suspect]
     Indication: DRUG USE FOR UNKNOWN INDICATION
     Dosage: 200 MG, FREQUENCY NOT SPECIFIED (DF)
     Dates: end: 20090901
  4. ZOLOFT [Suspect]
     Indication: DRUG USE FOR UNKNOWN INDICATION
     Dosage: 200 MG, FREQUENCY NOT SPECIFIED (DF)
     Dates: start: 20090901
  5. CLONOPIN [Concomitant]
  6. MUCINEX [Concomitant]
  7. TENEX [Concomitant]
  8. SINGULAIR [Concomitant]
  9. RISPERDAL [Concomitant]
  10. MELATONIN [Concomitant]
  11. MULTIVITAMIN /00831701/ [Concomitant]

REACTIONS (3)
  - AGGRESSION [None]
  - CONDITION AGGRAVATED [None]
  - OBSESSIVE-COMPULSIVE DISORDER [None]
